FAERS Safety Report 7274041-3 (Version None)
Quarter: 2011Q1

REPORT INFORMATION
  Report Type: 
  Country: None (occurrence: None)
  Receive Date: 20110203
  Receipt Date: 20110128
  Transmission Date: 20110831
  Serious: Yes (Hospitalization)
  Sender: FDA-Public Use
  Company Number: DE-BRISTOL-MYERS SQUIBB COMPANY-15141492

PATIENT
  Age: 42 Year
  Sex: Male
  Weight: 90 kg

DRUGS (13)
  1. VERGENTAN [Concomitant]
     Indication: PROPHYLAXIS
  2. MCP [Concomitant]
     Indication: PROPHYLAXIS
  3. FORTECORTIN [Concomitant]
     Indication: PROPHYLAXIS
  4. TOREM [Concomitant]
     Indication: OEDEMA
     Dates: start: 20100525, end: 20100525
  5. CARBAMAZEPINE [Concomitant]
  6. ETOPOSIDE [Suspect]
     Indication: NON-SMALL CELL LUNG CANCER
     Dosage: LAST DOSE:25MAY2010
     Route: 065
     Dates: start: 20100426, end: 20100526
  7. SAROTEN [Concomitant]
  8. PYRIDOXINE HCL [Concomitant]
  9. DURAGESIC-100 [Concomitant]
     Indication: PAIN
  10. PANTOZOL [Concomitant]
     Indication: PROPHYLAXIS
  11. CISPLATIN [Suspect]
     Indication: NON-SMALL CELL LUNG CANCER
     Dosage: LAST DOSE:25MAY2010
     Route: 065
     Dates: start: 20100426, end: 20100526
  12. ISONIAZID [Concomitant]
  13. SYMBICORT [Concomitant]
     Indication: DYSPNOEA

REACTIONS (1)
  - LARGE INTESTINE PERFORATION [None]
